FAERS Safety Report 7076054-3 (Version None)
Quarter: 2010Q4

REPORT INFORMATION
  Report Type: 
  Country: None (occurrence: None)
  Receive Date: 20101101
  Receipt Date: 20101025
  Transmission Date: 20110411
  Serious: No
  Sender: FDA-Public Use
  Company Number: US-BIOGENIDEC-2010BI036818

PATIENT
  Age: 47 Year
  Sex: Female

DRUGS (2)
  1. AVONEX [Suspect]
     Indication: MULTIPLE SCLEROSIS
     Route: 030
     Dates: start: 20100712, end: 20100806
  2. AVONEX [Suspect]
     Route: 030
     Dates: start: 20100903, end: 20101015

REACTIONS (3)
  - INFLUENZA LIKE ILLNESS [None]
  - OEDEMA PERIPHERAL [None]
  - PAIN [None]
